FAERS Safety Report 6940608-2 (Version None)
Quarter: 2010Q3

REPORT INFORMATION
  Report Type: 
  Country: None (occurrence: None)
  Receive Date: 20100825
  Receipt Date: 20100813
  Transmission Date: 20110219
  Serious: Yes (Hospitalization, Other)
  Sender: FDA-Public Use
  Company Number: PHHY2010BR53805

PATIENT
  Sex: Female
  Weight: 70 kg

DRUGS (9)
  1. EXELON [Suspect]
     Indication: DEMENTIA ALZHEIMER'S TYPE
     Dosage: 1.5 MG, BID
     Route: 048
     Dates: start: 20090201
  2. EXELON [Suspect]
     Dosage: 3 MG, BID
     Route: 048
     Dates: start: 20100501
  3. EXELON [Suspect]
     Dosage: 1.5 MG, BID
     Route: 048
     Dates: start: 20100701
  4. FUROSEMID [Concomitant]
     Indication: OEDEMA PERIPHERAL
     Dosage: 40 MG, QD
     Route: 048
  5. DIGOXIN [Concomitant]
     Indication: CARDIAC DISORDER
     Dosage: 0.5 DF, QD
     Route: 048
     Dates: start: 20060101
  6. SIMVASTATIN [Concomitant]
     Indication: BLOOD CHOLESTEROL ABNORMAL
     Dosage: 20 MG, UNK
     Route: 048
     Dates: start: 19800101
  7. ICTUS [Concomitant]
     Indication: HYPERTENSION
     Dosage: 1 DF, TID
     Route: 048
  8. VENLAFAXINE HYDROCHLORIDE [Concomitant]
     Indication: DEPRESSION
     Dosage: 75 MG, QD
     Route: 048
  9. RISPERIDONE [Concomitant]
     Indication: SLEEP DISORDER
     Dosage: 0.5 DF, QD
     Route: 048
     Dates: start: 20060101

REACTIONS (6)
  - ABDOMINAL PAIN UPPER [None]
  - DIZZINESS [None]
  - NAUSEA [None]
  - VENOUS OCCLUSION [None]
  - VENOUS OPERATION [None]
  - VOMITING [None]
